FAERS Safety Report 7393898-9 (Version None)
Quarter: 2011Q2

REPORT INFORMATION
  Report Type: 
  Country: None (occurrence: None)
  Receive Date: 20110405
  Receipt Date: 20110322
  Transmission Date: 20111010
  Serious: Yes (Hospitalization, Other)
  Sender: FDA-Public Use
  Company Number: US-ACTELION-A-US2011-45450

PATIENT

DRUGS (1)
  1. TRACLEER [Suspect]
     Indication: PULMONARY ARTERIAL HYPERTENSION
     Dosage: UNK
     Route: 048
     Dates: start: 20090301

REACTIONS (5)
  - URINARY TRACT INFECTION [None]
  - CARDIAC FAILURE CONGESTIVE [None]
  - ACUTE PULMONARY OEDEMA [None]
  - LOWER LIMB FRACTURE [None]
  - FALL [None]
